FAERS Safety Report 10897304 (Version 1)
Quarter: 2015Q1

REPORT INFORMATION
  Report Type: Spontaneous
  Country: None (occurrence: None)
  Receive Date: 20150302
  Receipt Date: 20150302
  Transmission Date: 20150721
  Serious: No
  Sender: FDA-Public Use
  Company Number: None

PATIENT
  Age: 64 Year
  Sex: Female

DRUGS (3)
  1. ESTRIOL [Suspect]
     Active Substance: ESTRIOL
     Indication: ATROPHY
     Dosage: 2-3 TIMES WEEKLY
     Route: 067
     Dates: start: 20150217, end: 20150228
  2. ESTRIOL [Suspect]
     Active Substance: ESTRIOL
     Indication: VAGINAL DISORDER
     Dosage: 2-3 TIMES WEEKLY
     Route: 067
     Dates: start: 20150217, end: 20150228
  3. ANTIBIOTIC [Concomitant]
     Active Substance: UNSPECIFIED INGREDIENT

REACTIONS (2)
  - Vulvovaginal pruritus [None]
  - Product formulation issue [None]

NARRATIVE: CASE EVENT DATE: 20150228
